FAERS Safety Report 7213811-4 (Version None)
Quarter: 2011Q1

REPORT INFORMATION
  Report Type: 
  Country: None (occurrence: None)
  Receive Date: 20110106
  Receipt Date: 20101227
  Transmission Date: 20110831
  Serious: Yes (Disabling)
  Sender: FDA-Public Use
  Company Number: DE-BAYER-2010-007849

PATIENT
  Sex: Male
  Weight: 82 kg

DRUGS (4)
  1. VIAGRA [Suspect]
     Indication: ERECTILE DYSFUNCTION
     Dosage: 50 MG, PRN
     Dates: start: 20050101, end: 20100101
  2. CIALIS [Suspect]
     Indication: ERECTILE DYSFUNCTION
  3. LEVITRA [Suspect]
     Indication: ERECTILE DYSFUNCTION
  4. CHOLESTYRAMINE [Concomitant]

REACTIONS (2)
  - OCULAR HYPERAEMIA [None]
  - EYE HAEMORRHAGE [None]
